FAERS Safety Report 12887511 (Version 2)
Quarter: 2016Q4

REPORT INFORMATION
  Report Type: Spontaneous
  Country: US (occurrence: US)
  Receive Date: 20161026
  Receipt Date: 20161108
  Transmission Date: 20170207
  Serious: Yes (Hospitalization, Other)
  Sender: FDA-Public Use
  Company Number: US-BEH-2016074438

PATIENT
  Sex: Female
  Weight: 89.8 kg

DRUGS (26)
  1. LMX                                /00033401/ [Concomitant]
  2. WELLBUTRIN [Concomitant]
     Active Substance: BUPROPION HYDROCHLORIDE
  3. CELEXA [Concomitant]
     Active Substance: CITALOPRAM HYDROBROMIDE
  4. DULERA [Concomitant]
     Active Substance: FORMOTEROL FUMARATE DIHYDRATE\MOMETASONE FUROATE
  5. TRAMADOL. [Concomitant]
     Active Substance: TRAMADOL
  6. DIPHENHYDRAMINE. [Concomitant]
     Active Substance: DIPHENHYDRAMINE
  7. EPIPEN [Concomitant]
     Active Substance: EPINEPHRINE
  8. CLONAZEPAM. [Concomitant]
     Active Substance: CLONAZEPAM
  9. ASPIRIN. [Concomitant]
     Active Substance: ASPIRIN
  10. PHENERGAN [Concomitant]
     Active Substance: PROMETHAZINE HYDROCHLORIDE
  11. LIPITOR [Concomitant]
     Active Substance: ATORVASTATIN CALCIUM
  12. NEXIUM [Concomitant]
     Active Substance: ESOMEPRAZOLE MAGNESIUM
  13. CYCLOBENZAPRINE [Concomitant]
     Active Substance: CYCLOBENZAPRINE
  14. XOPENEX [Concomitant]
     Active Substance: LEVALBUTEROL HYDROCHLORIDE
  15. SALINE                             /00075401/ [Concomitant]
     Active Substance: SODIUM CHLORIDE
  16. FLONASE [Concomitant]
     Active Substance: FLUTICASONE PROPIONATE
  17. HYDROMORPHONE [Concomitant]
     Active Substance: HYDROMORPHONE
  18. SINGULAIR [Concomitant]
     Active Substance: MONTELUKAST SODIUM
  19. OMEPRAZOLE. [Concomitant]
     Active Substance: OMEPRAZOLE
  20. MULTIVITAMIN                       /00097801/ [Concomitant]
     Active Substance: VITAMINS
  21. PROAIR HFA [Concomitant]
     Active Substance: ALBUTEROL SULFATE
  22. HIZENTRA [Suspect]
     Active Substance: HUMAN IMMUNOGLOBULIN G
     Indication: HYPOGAMMAGLOBULINAEMIA
     Dosage: 12 G, QW
     Route: 058
     Dates: start: 20160504
  23. PREDNISONE. [Concomitant]
     Active Substance: PREDNISONE
  24. ACETAMINOPHEN. [Concomitant]
     Active Substance: ACETAMINOPHEN
  25. ZYRTEC [Concomitant]
     Active Substance: CETIRIZINE HYDROCHLORIDE
  26. LIDOCAINE. [Concomitant]
     Active Substance: LIDOCAINE

REACTIONS (2)
  - Vertigo [Unknown]
  - Brain neoplasm benign [Unknown]
